FAERS Safety Report 13592857 (Version 1)
Quarter: 2017Q2

REPORT INFORMATION
  Report Type: Spontaneous
  Country: JP (occurrence: JP)
  Receive Date: 20170530
  Receipt Date: 20170530
  Transmission Date: 20170830
  Serious: Yes (Other)
  Sender: FDA-Public Use
  Company Number: JP-BAYER-2017-095794

PATIENT
  Weight: 2.16 kg

DRUGS (1)
  1. BAYASPIRIN 100 MG [Suspect]
     Active Substance: ASPIRIN
     Dosage: UNK
     Route: 064

REACTIONS (4)
  - Nonreassuring foetal heart rate pattern [None]
  - Foetal exposure during pregnancy [Recovered/Resolved]
  - Low birth weight baby [None]
  - Apgar score abnormal [None]
